FAERS Safety Report 5131335-5 (Version None)
Quarter: 2006Q4

REPORT INFORMATION
  Report Type: 
  Country: None (occurrence: None)
  Receive Date: 20061020
  Receipt Date: 20060928
  Transmission Date: 20070319
  Serious: Yes (Hospitalization)
  Sender: FDA-Public Use
  Company Number: US-JNJFOC-20060706071

PATIENT
  Age: 17 Year
  Sex: Female

DRUGS (2)
  1. REMICADE [Suspect]
     Indication: CROHN'S DISEASE
     Dosage: START DATE 4 OR 5 YEARS AGO
     Route: 042
  2. 6MP [Concomitant]
     Indication: CROHN'S DISEASE

REACTIONS (1)
  - T-CELL LYMPHOMA [None]
